FAERS Safety Report 21220419 (Version 4)
Quarter: 2023Q1

REPORT INFORMATION
  Report Type: Other
  Country: CN (occurrence: None)
  Receive Date: 20220817
  Receipt Date: 20230123
  Transmission Date: 20230418
  Serious: Yes (Hospitalization)
  Sender: FDA-Public Use
  Company Number: CN-ROCHE-3159904

PATIENT
  Age: 67 Year
  Sex: Female
  Weight: 59 kg

DRUGS (2)
  1. CAPECITABINE [Suspect]
     Active Substance: CAPECITABINE
     Indication: Breast cancer metastatic
     Dosage: EVERY 12 HOURS (MORNING AND EVENING) ORALLY FOR 14 DAYS FOLLOWED BY 7 DAYS FOR REST EVERY 21 DAYS FO
     Route: 048
     Dates: start: 20210427, end: 20220712
  2. LAPATINIB [Suspect]
     Active Substance: LAPATINIB
     Indication: Breast cancer metastatic
     Dosage: ONCE DAILY EVERY 21 DAYS FOR 1 CYCLE
     Route: 048
     Dates: start: 20210427, end: 20220718

REACTIONS (1)
  - Muscular weakness [Recovering/Resolving]

NARRATIVE: CASE EVENT DATE: 20220723
